FAERS Safety Report 15115606 (Version 1)
Quarter: 2018Q3

REPORT INFORMATION
  Report Type: Spontaneous
  Country: US (occurrence: US)
  Receive Date: 20180706
  Receipt Date: 20180706
  Transmission Date: 20181010
  Serious: No
  Sender: FDA-Public Use
  Company Number: US-009507513-1806USA004341

PATIENT
  Age: 19 Year
  Sex: Female

DRUGS (3)
  1. PRAZOSIN. [Concomitant]
     Active Substance: PRAZOSIN
     Dosage: UNK
  2. FLUOXETINE [Concomitant]
     Active Substance: FLUOXETINE HYDROCHLORIDE
     Dosage: UNK
  3. NEXPLANON [Suspect]
     Active Substance: ETONOGESTREL
     Dosage: 3 YEAR IMPLANT
     Route: 059
     Dates: start: 20170321

REACTIONS (3)
  - Implant site pruritus [Unknown]
  - Implant site bruising [Recovered/Resolved]
  - Implant site hypersensitivity [Unknown]
